FAERS Safety Report 5800323-5 (Version None)
Quarter: 2008Q3

REPORT INFORMATION
  Report Type: 
  Country: None (occurrence: None)
  Receive Date: 20080701
  Receipt Date: 20080616
  Transmission Date: 20090109
  Serious: Yes (Hospitalization)
  Sender: FDA-Public Use
  Company Number: 2008AL006977

PATIENT
  Age: 66 Year
  Sex: Male
  Weight: 131.5431 kg

DRUGS (5)
  1. DIGOXIN [Suspect]
     Dosage: 0.125MG 1.5TAB DAILY PO
     Route: 048
  2. LOPRESSOR [Concomitant]
  3. LISINOPRIL [Concomitant]
  4. LASIX [Concomitant]
  5. INDOCIN [Concomitant]

REACTIONS (4)
  - ABASIA [None]
  - DIZZINESS [None]
  - DYSPNOEA [None]
  - MALAISE [None]
